FAERS Safety Report 15393514 (Version 1)
Quarter: 2018Q3

REPORT INFORMATION
  Report Type: Report from Study
  Country: ES (occurrence: ES)
  Receive Date: 20180917
  Receipt Date: 20180917
  Transmission Date: 20181010
  Serious: Yes (Hospitalization)
  Sender: FDA-Public Use
  Company Number: ES-PFIZER INC-2018369266

PATIENT
  Age: 78 Year
  Sex: Female
  Weight: 90 kg

DRUGS (9)
  1. PACLITAXEL. [Suspect]
     Active Substance: PACLITAXEL
     Indication: BREAST CANCER METASTATIC
     Dosage: 80 MG/M2, WEEKLY
     Route: 042
     Dates: start: 20161123
  2. ALLOPURINOL. [Concomitant]
     Active Substance: ALLOPURINOL
     Indication: HYPERURICAEMIA
     Dosage: 100 MG, 1X/DAY (EVERY 24 HOURS)
     Route: 048
     Dates: start: 19000101
  3. ACETYLSALICYLIC ACID [Concomitant]
     Active Substance: ASPIRIN
     Indication: PROPHYLAXIS
     Dosage: 100 MG, 1X/DAY (EVERY 24 HOURS)
     Route: 048
     Dates: start: 19000101
  4. REPAGLINIDA [Concomitant]
     Active Substance: REPAGLINIDE
     Indication: DIABETES MELLITUS
     Dosage: 1 MG, 1X/DAY (EVERY 24 HOURS)
     Route: 048
     Dates: start: 19900101
  5. OMEPRAZOL [Concomitant]
     Active Substance: OMEPRAZOLE
     Indication: PROPHYLAXIS
     Dosage: 20 MG, 1X/DAY (EVERY 24 HOURS)
     Route: 048
     Dates: start: 19900101
  6. BEVACIZUMAB. [Suspect]
     Active Substance: BEVACIZUMAB
     Dosage: 10 MG/KG, EVERY 2 WEEKS
     Route: 042
     Dates: start: 20170112, end: 20170714
  7. PACLITAXEL. [Suspect]
     Active Substance: PACLITAXEL
     Dosage: 80 MG/M2, WEEKLY
     Route: 042
     Dates: start: 20170112, end: 20170714
  8. BEVACIZUMAB. [Suspect]
     Active Substance: BEVACIZUMAB
     Indication: BREAST CANCER METASTATIC
     Dosage: 10 MG/KG, UNK
     Route: 042
     Dates: start: 20161123
  9. LOSARTAN. [Concomitant]
     Active Substance: LOSARTAN
     Indication: HYPERTENSION
     Dosage: 100 MG, 1X/DAY (EVERY 24 HOURS)
     Route: 048
     Dates: start: 19000101

REACTIONS (14)
  - Aphonia [Recovered/Resolved]
  - Epistaxis [Recovered/Resolved]
  - Fatigue [Recovered/Resolved]
  - Pruritus [Recovered/Resolved]
  - Constipation [Recovered/Resolved]
  - Neutrophil count decreased [Recovered/Resolved]
  - Epistaxis [Recovered/Resolved]
  - Hypertension [Recovered/Resolved]
  - Anaemia [Recovering/Resolving]
  - Decreased appetite [Recovered/Resolved]
  - Asthenia [Recovered/Resolved]
  - Nausea [Recovered/Resolved]
  - Diarrhoea [Recovered/Resolved]
  - Blood alkaline phosphatase increased [Recovered/Resolved]

NARRATIVE: CASE EVENT DATE: 20161123
